FAERS Safety Report 20626494 (Version 4)
Quarter: 2022Q3

REPORT INFORMATION
  Report Type: Report from Study
  Country: US (occurrence: US)
  Receive Date: 20220323
  Receipt Date: 20220829
  Transmission Date: 20221026
  Serious: No
  Sender: FDA-Public Use
  Company Number: US-NOVARTISTESTPH-NVSC2022US065469

PATIENT
  Sex: Female

DRUGS (1)
  1. PROMACTA [Suspect]
     Active Substance: ELTROMBOPAG OLAMINE
     Indication: Product used for unknown indication
     Dosage: UNK
     Route: 065

REACTIONS (7)
  - Blood disorder [Unknown]
  - Thinking abnormal [Unknown]
  - Fall [Unknown]
  - Gait inability [Unknown]
  - Illness [Unknown]
  - Platelet count increased [Unknown]
  - Wrong technique in product usage process [Unknown]
